FAERS Safety Report 19745497 (Version 1)
Quarter: 2021Q3

REPORT INFORMATION
  Report Type: Spontaneous
  Country: NL (occurrence: NL)
  Receive Date: 20210825
  Receipt Date: 20210825
  Transmission Date: 20211014
  Serious: Yes (Other)
  Sender: FDA-Public Use
  Company Number: NL-MYLANLABS-2021M1054655

PATIENT
  Age: 69 Year
  Sex: Female
  Weight: 76.6 kg

DRUGS (2)
  1. COMIRNATY [Suspect]
     Active Substance: TOZINAMERAN
     Indication: COVID-19 IMMUNISATION
     Dosage: 1 DOSAGE FORM
     Dates: start: 20210507
  2. DICLOFENAC MYLAN [Suspect]
     Active Substance: DICLOFENAC SODIUM
     Indication: PRODUCT USED FOR UNKNOWN INDICATION
     Dosage: 50 MILLIGRAM, TID
     Dates: start: 20210503

REACTIONS (18)
  - Fatigue [Recovered/Resolved]
  - Injection site inflammation [Recovered/Resolved]
  - Malaise [Recovering/Resolving]
  - Paraesthesia oral [Recovering/Resolving]
  - Confusional state [Recovering/Resolving]
  - Dizziness [Recovering/Resolving]
  - Pain in extremity [Recovering/Resolving]
  - Oxygen saturation decreased [Recovered/Resolved]
  - Peripheral coldness [Recovering/Resolving]
  - Arrhythmia [Recovered/Resolved]
  - Myalgia [Recovering/Resolving]
  - Nausea [Recovered/Resolved]
  - Chest pain [Recovered/Resolved]
  - Balance disorder [Recovering/Resolving]
  - Muscular weakness [Recovered/Resolved]
  - Injection site swelling [Recovered/Resolved]
  - Blood pressure abnormal [Recovered/Resolved]
  - Injection site warmth [Recovered/Resolved]

NARRATIVE: CASE EVENT DATE: 20210507
